FAERS Safety Report 4143548 (Version 6)
Quarter: 2020Q3

REPORT INFORMATION
  Report Type: Report from Study
  Country: FR (occurrence: FR)
  Receive Date: 20040512
  Receipt Date: 20040813
  Transmission Date: 20201104
  Serious: Yes (Hospitalization)
  Sender: FDA-Public Use
  Company Number: FR-JNJFOC-20040500461

PATIENT
  Age: 48 Year
  Sex: Male

DRUGS (2)
  1. INFLIXIMAB [Suspect]
     Active Substance: INFLIXIMAB
     Indication: PSORIASIS
     Route: 042
  2. INFLIXIMAB [Suspect]
     Active Substance: INFLIXIMAB
     Route: 042

REACTIONS (6)
  - Vision blurred [None]
  - Headache [None]
  - Asthenia [None]
  - Discomfort [None]
  - Syncope [None]
  - Accommodation disorder [None]

NARRATIVE: CASE EVENT DATE: 20040409
